FAERS Safety Report 11517100 (Version 1)
Quarter: 2015Q3

REPORT INFORMATION
  Report Type: Report from Study
  Country: GB (occurrence: GB)
  Receive Date: 20150917
  Receipt Date: 20150917
  Transmission Date: 20151125
  Serious: Yes (Hospitalization)
  Sender: FDA-Public Use
  Company Number: GB-ABBVIE-15P-167-1460813-00

PATIENT
  Age: 45 Year
  Sex: Male
  Weight: 115 kg

DRUGS (21)
  1. HUMIRA [Suspect]
     Active Substance: ADALIMUMAB
     Indication: PSORIASIS
     Route: 058
     Dates: start: 20080429
  2. FENOFIBRATE. [Concomitant]
     Active Substance: FENOFIBRATE
     Indication: HYPERLIPIDAEMIA
     Dates: start: 200901
  3. GENTAMICIN. [Concomitant]
     Active Substance: GENTAMICIN
     Indication: INFECTION
     Dates: start: 20110728, end: 20110729
  4. IMIPENEM [Concomitant]
     Active Substance: IMIPENEM
     Indication: INFECTION
     Dates: start: 20110704, end: 20140714
  5. ALPHOSYL [Concomitant]
     Indication: PSORIASIS
     Dosage: 1 APPLICATION
     Dates: start: 20120515
  6. DOXYCYCLINE. [Concomitant]
     Active Substance: DOXYCYCLINE
     Indication: GROIN ABSCESS
     Dates: start: 20130313
  7. LYMECYCLINE [Concomitant]
     Active Substance: LYMECYCLINE
     Indication: GROIN ABSCESS
     Dates: start: 20130910, end: 201312
  8. CLOBETASONE BUTYRATE [Concomitant]
     Active Substance: CLOBETASONE BUTYRATE
     Indication: PSORIASIS
     Dosage: 1 APPLICATION
     Dates: start: 20120911
  9. SULFASALAZINE. [Concomitant]
     Active Substance: SULFASALAZINE
     Indication: PSORIATIC ARTHROPATHY
     Dates: start: 201504, end: 201507
  10. AUGMENTIN [Concomitant]
     Active Substance: AMOXICILLIN\CLAVULANATE POTASSIUM
     Indication: INFECTION
     Route: 050
     Dates: start: 20110627, end: 20110628
  11. AMOXICILLIN. [Concomitant]
     Active Substance: AMOXICILLIN
     Indication: INFECTION
     Dosage: 16
     Dates: start: 20110715, end: 20110721
  12. CEFTAZIDIME. [Concomitant]
     Active Substance: CEFTAZIDIME
     Indication: INFECTION
     Dates: start: 20110628, end: 201107
  13. HUMIRA [Suspect]
     Active Substance: ADALIMUMAB
     Route: 058
     Dates: start: 20100713, end: 20110614
  14. CLOBETASONE BUTYRATE [Concomitant]
     Active Substance: CLOBETASONE BUTYRATE
     Dosage: 1 APPLICATION
     Dates: start: 20120911, end: 20120925
  15. LYMECYCLINE [Concomitant]
     Active Substance: LYMECYCLINE
     Dates: start: 20130910, end: 201312
  16. CLINDAMYCIN [Concomitant]
     Active Substance: CLINDAMYCIN\CLINDAMYCIN PHOSPHATE
     Indication: FURUNCLE
     Dates: start: 20140923, end: 20141022
  17. BETADERMIC [Concomitant]
     Indication: PSORIASIS
     Dosage: 1 APPLICATION
     Dates: start: 20120515
  18. MORPHINE SULFATE PENTAHYDRATE [Concomitant]
     Indication: ARTHRALGIA
     Dates: start: 2007
  19. MORPHINE SULFATE. [Concomitant]
     Active Substance: MORPHINE SULFATE
     Indication: ARTHRALGIA
     Dates: start: 200704
  20. OMEGA-3-ACID ETHYL ESTER [Concomitant]
     Active Substance: OMEGA-3-ACID ETHYL ESTERS
     Indication: TYPE III HYPERLIPIDAEMIA
     Dates: start: 20090528
  21. METRONIDAZOLE. [Concomitant]
     Active Substance: METRONIDAZOLE
     Indication: INFECTION
     Dates: start: 20110627, end: 201107

REACTIONS (1)
  - Abdominal hernia [Recovered/Resolved]

NARRATIVE: CASE EVENT DATE: 2011
